FAERS Safety Report 5685050-X (Version None)
Quarter: 2008Q1

REPORT INFORMATION
  Report Type: 
  Country: None (occurrence: None)
  Receive Date: 20080328
  Receipt Date: 19991005
  Transmission Date: 20080703
  Serious: Yes (Death, Other)
  Sender: FDA-Public Use
  Company Number: CA-ROCHE-214100

PATIENT
  Age: 41 Year
  Sex: Female
  Weight: 163.3 kg

DRUGS (3)
  1. XENICAL [Suspect]
     Indication: OBESITY
     Route: 048
     Dates: start: 19990707
  2. PERCOCET [Concomitant]
     Indication: ANALGESIA
  3. ZOLOFT [Concomitant]
     Indication: DEPRESSION

REACTIONS (5)
  - ABDOMINAL DISCOMFORT [None]
  - CARDIOMEGALY [None]
  - CONSTIPATION [None]
  - DEATH [None]
  - OVERDOSE [None]
